FAERS Safety Report 7183817-2 (Version None)
Quarter: 2010Q4

REPORT INFORMATION
  Report Type: 
  Country: None (occurrence: None)
  Receive Date: 20101220
  Receipt Date: 20101220
  Transmission Date: 20110411
  Serious: Yes (Other)
  Sender: FDA-Public Use
  Company Number: None

PATIENT
  Age: 33 Year
  Sex: Male
  Weight: 67.1324 kg

DRUGS (4)
  1. LEVETIRACETAM [Suspect]
     Indication: EPILEPSY
     Dosage: 2500 MG BID PO
     Route: 048
  2. TOPIRAMATE [Concomitant]
  3. CLONAZEPAM [Concomitant]
  4. TRAZODONE [Concomitant]

REACTIONS (3)
  - HEADACHE [None]
  - MUSCLE SPASMS [None]
  - PRODUCT SUBSTITUTION ISSUE [None]
